FAERS Safety Report 21469630 (Version 1)
Quarter: 2022Q4

REPORT INFORMATION
  Report Type: Spontaneous
  Country: US (occurrence: US)
  Receive Date: 20221018
  Receipt Date: 20221018
  Transmission Date: 20230112
  Serious: No
  Sender: FDA-Public Use
  Company Number: US-ADAMAS PHARMA, LLC-2022ADA00215

PATIENT
  Age: 66 Year
  Sex: Male
  Weight: 77.098 kg

DRUGS (11)
  1. GOCOVRI [Suspect]
     Active Substance: AMANTADINE
     Indication: Dyskinesia
     Dosage: 137 MG, 1X/DAY AT BEDTIME
     Route: 048
     Dates: start: 20211215, end: 20211221
  2. GOCOVRI [Suspect]
     Active Substance: AMANTADINE
     Dosage: 274 MG, 1X/DAY AT BEDTIME
     Route: 048
     Dates: start: 20211222
  3. INBRIJA [Concomitant]
     Active Substance: LEVODOPA
     Dosage: UNK
     Dates: start: 202201
  4. MELATONIN [Concomitant]
     Active Substance: MELATONIN
  5. MOTRIN IB [Concomitant]
     Active Substance: IBUPROFEN
     Dosage: UNK, MAYBE 1X/WEEK
  6. VITAMINS [Concomitant]
     Active Substance: VITAMINS
  7. TYLENOL [Concomitant]
     Active Substance: ACETAMINOPHEN
     Dosage: RARE
  8. RYTARY [Concomitant]
     Active Substance: CARBIDOPA\LEVODOPA
  9. RASAGILINE [Concomitant]
     Active Substance: RASAGILINE
  10. CLONAZEPAM [Concomitant]
     Active Substance: CLONAZEPAM
     Dosage: UNK, 1X/DAY AT NIGHT
  11. CARBIDOPA\LEVODOPA [Concomitant]
     Active Substance: CARBIDOPA\LEVODOPA
     Dosage: UNK, THROUGHOUT THE DAY

REACTIONS (1)
  - Tremor [Not Recovered/Not Resolved]

NARRATIVE: CASE EVENT DATE: 20220101
